FAERS Safety Report 22632556 (Version 1)
Quarter: 2023Q2

REPORT INFORMATION
  Report Type: Spontaneous
  Country: PT (occurrence: PT)
  Receive Date: 20230623
  Receipt Date: 20230623
  Transmission Date: 20230722
  Serious: Yes (Hospitalization, Other)
  Sender: FDA-Public Use
  Company Number: PT-MEDINFARP-2023-0138

PATIENT
  Age: 73 Year
  Sex: Female

DRUGS (1)
  1. AMIODARONE [Suspect]
     Active Substance: AMIODARONE
     Indication: Atrial fibrillation
     Dosage: UNK
     Route: 065

REACTIONS (4)
  - Tubulointerstitial nephritis [Recovering/Resolving]
  - Nausea [Recovered/Resolved]
  - Rash maculo-papular [Unknown]
  - Rash pruritic [Unknown]
